FAERS Safety Report 9012727 (Version 5)
Quarter: 2014Q3

REPORT INFORMATION
  Report Type: Spontaneous
  Country: US (occurrence: US)
  Receive Date: 20130114
  Receipt Date: 20140711
  Transmission Date: 20150326
  Serious: Yes (Death, Hospitalization, Other)
  Sender: FDA-Public Use
  Company Number: US-009507513-1301USA005246

PATIENT
  Sex: Female
  Weight: 66.67 kg

DRUGS (3)
  1. NUVARING [Suspect]
     Active Substance: ETHINYL ESTRADIOL\ETONOGESTREL
     Indication: MENSTRUAL DISORDER
  2. NUVARING [Suspect]
     Active Substance: ETHINYL ESTRADIOL\ETONOGESTREL
     Indication: CONTRACEPTION
     Dosage: 0.12-0.015 MG/24 HR 1 RING EVERY 21 DAYS
     Route: 067
     Dates: start: 20110429, end: 201201
  3. LISINOPRIL. [Concomitant]
     Active Substance: LISINOPRIL
     Indication: BLOOD PRESSURE
     Dosage: UNK
     Dates: start: 2002, end: 2011

REACTIONS (34)
  - Contusion [Unknown]
  - Acne [Unknown]
  - Retinopathy [Unknown]
  - Nephropathy [Unknown]
  - Sarcoidosis [Unknown]
  - Coagulopathy [Unknown]
  - Lymphadenopathy mediastinal [Unknown]
  - Rotator cuff syndrome [Unknown]
  - Off label use [Unknown]
  - Vulvovaginitis [Unknown]
  - Drug abuse [Unknown]
  - Pulmonary embolism [Unknown]
  - Pulmonary mass [Unknown]
  - Neck pain [Unknown]
  - Thrombosis [Unknown]
  - Ketonuria [Unknown]
  - Hyperlipidaemia [Unknown]
  - Hirsutism [Unknown]
  - Hilar lymphadenopathy [Unknown]
  - Otitis externa [Unknown]
  - Pain in extremity [Unknown]
  - Dyspnoea [Unknown]
  - Protein S deficiency [Unknown]
  - Fungal infection [Recovered/Resolved]
  - Pneumonia [Unknown]
  - Inappropriate schedule of drug administration [Unknown]
  - Back pain [Unknown]
  - Device expulsion [Unknown]
  - Vaginal infection [Unknown]
  - Vulvovaginal mycotic infection [Unknown]
  - Diabetes mellitus inadequate control [Fatal]
  - Menstruation irregular [Unknown]
  - Breast enlargement [Unknown]
  - Diabetic ketoacidosis [Fatal]

NARRATIVE: CASE EVENT DATE: 2011
